FAERS Safety Report 9985951 (Version 1)
Quarter: 2014Q1

REPORT INFORMATION
  Report Type: Report from Study
  Country: US (occurrence: US)
  Receive Date: 20140307
  Receipt Date: 20140307
  Transmission Date: 20141002
  Serious: No
  Sender: FDA-Public Use
  Company Number: US-ABBVIE-13P-163-1086762-00

PATIENT
  Sex: Female
  Weight: 68.1 kg

DRUGS (5)
  1. HUMIRA [Suspect]
     Indication: ANKYLOSING SPONDYLITIS
     Dates: start: 201212
  2. ARAVA [Concomitant]
     Indication: ANKYLOSING SPONDYLITIS
  3. GABAPENTIN [Concomitant]
     Indication: ANKYLOSING SPONDYLITIS
  4. OXYCODONE [Concomitant]
     Indication: PAIN
  5. FLEXERIL [Concomitant]
     Indication: MUSCLE SPASMS

REACTIONS (2)
  - Inappropriate schedule of drug administration [Unknown]
  - Hypoaesthesia [Unknown]
